FAERS Safety Report 25167378 (Version 1)
Quarter: 2025Q2

REPORT INFORMATION
  Report Type: Spontaneous
  Country: US (occurrence: None)
  Receive Date: 20250405
  Receipt Date: 20250405
  Transmission Date: 20250716
  Serious: Yes (Hospitalization)
  Sender: FDA-CTU
  Company Number: None

PATIENT
  Age: 61 Year
  Sex: Female
  Weight: 72 kg

DRUGS (11)
  1. BENLYSTA [Suspect]
     Active Substance: BELIMUMAB
     Indication: Fibromyalgia
     Route: 042
  2. BENLYSTA [Suspect]
     Active Substance: BELIMUMAB
     Indication: Systemic lupus erythematosus
  3. LYRICA [Suspect]
     Active Substance: PREGABALIN
  4. ELIQUIS [Concomitant]
     Active Substance: APIXABAN
  5. PAXIL [Concomitant]
     Active Substance: PAROXETINE HYDROCHLORIDE
  6. hydroxychloriquin [Concomitant]
  7. GABAPENTIN [Concomitant]
     Active Substance: GABAPENTIN
  8. LYRICA [Concomitant]
     Active Substance: PREGABALIN
  9. BENLYSTA [Concomitant]
     Active Substance: BELIMUMAB
  10. VITAMINS [Concomitant]
     Active Substance: VITAMINS
  11. MELATONIN [Concomitant]
     Active Substance: MELATONIN

REACTIONS (2)
  - Progressive multifocal leukoencephalopathy [None]
  - General physical health deterioration [None]

NARRATIVE: CASE EVENT DATE: 20250213
